FAERS Safety Report 8297468-X (Version None)
Quarter: 2012Q2

REPORT INFORMATION
  Report Type: 
  Country: None (occurrence: None)
  Receive Date: 20120419
  Receipt Date: 20120418
  Transmission Date: 20120825
  Serious: Yes (Other)
  Sender: FDA-Public Use
  Company Number: US-JNJFOC-20120403810

PATIENT
  Sex: Female

DRUGS (10)
  1. VYVANSE [Concomitant]
     Route: 065
  2. SYNTHROID [Concomitant]
     Route: 065
  3. TRAMADOL [Concomitant]
     Route: 065
  4. REMICADE [Suspect]
     Indication: CROHN'S DISEASE
     Route: 042
  5. SERTRALINE HYDROCHLORIDE [Concomitant]
     Route: 065
  6. GLIMEPIRIDE [Concomitant]
     Route: 065
  7. LOVASTATIN [Concomitant]
     Route: 065
  8. LISINOPRIL [Concomitant]
     Route: 065
  9. REMICADE [Suspect]
     Route: 042
     Dates: start: 20120206
  10. METFORMIN HCL [Concomitant]
     Route: 065

REACTIONS (2)
  - ABDOMINAL DISTENSION [None]
  - DYSPNOEA [None]
